FAERS Safety Report 24213670 (Version 1)
Quarter: 2024Q3

REPORT INFORMATION
  Report Type: Spontaneous
  Country: FR (occurrence: FR)
  Receive Date: 20240815
  Receipt Date: 20240815
  Transmission Date: 20241016
  Serious: Yes (Hospitalization, Other)
  Sender: MYLAN
  Company Number: None

PATIENT
  Age: 28 Year
  Sex: Female
  Weight: 50 kg

DRUGS (3)
  1. BROMAZEPAM [Suspect]
     Active Substance: BROMAZEPAM
     Indication: Product used for unknown indication
     Dosage: 180 MILLIGRAM (30 TABLETS IN 1 DOSE)
     Route: 048
     Dates: start: 20230607, end: 20230607
  2. VENLAFAXINE [Suspect]
     Active Substance: VENLAFAXINE HYDROCHLORIDE
     Indication: Anxiety
     Dosage: 2.25 GRAM (30 TABLETS IN 1 DOSE)
     Route: 048
     Dates: start: 20230607, end: 20230607
  3. HYDROXYZINE [Suspect]
     Active Substance: HYDROXYZINE HYDROCHLORIDE
     Indication: Product used for unknown indication
     Dosage: 1.13 GRAM (45 TABLETS IN 1 DOSE)
     Route: 048
     Dates: start: 20230607, end: 20230607

REACTIONS (3)
  - Poisoning deliberate [Unknown]
  - Toxicity to various agents [Recovered/Resolved]
  - Intentional overdose [Recovered/Resolved]

NARRATIVE: CASE EVENT DATE: 20230607
